FAERS Safety Report 8518528-1 (Version None)
Quarter: 2012Q3

REPORT INFORMATION
  Report Type: 
  Country: None (occurrence: None)
  Receive Date: 20120718
  Receipt Date: 20120705
  Transmission Date: 20120928
  Serious: No
  Sender: FDA-Public Use
  Company Number: US-ASTRAZENECA-2012SE45814

PATIENT
  Sex: Female

DRUGS (5)
  1. SEROQUEL [Suspect]
     Indication: BIPOLAR I DISORDER
     Route: 048
  2. SEROQUEL [Suspect]
     Route: 048
  3. ADDERALL 5 [Concomitant]
     Indication: ATTENTION DEFICIT/HYPERACTIVITY DISORDER
  4. KLONOPIN [Concomitant]
     Indication: PANIC ATTACK
  5. KLONOPIN [Concomitant]
     Indication: SLEEP DISORDER

REACTIONS (11)
  - HALLUCINATION, AUDITORY [None]
  - PERSECUTORY DELUSION [None]
  - IMPAIRED WORK ABILITY [None]
  - EUPHORIC MOOD [None]
  - PHOBIA [None]
  - SOCIAL PHOBIA [None]
  - PARANOIA [None]
  - PANIC ATTACK [None]
  - PALPITATIONS [None]
  - HALLUCINATION, VISUAL [None]
  - LETHARGY [None]
